FAERS Safety Report 16331283 (Version 1)
Quarter: 2019Q2

REPORT INFORMATION
  Report Type: Spontaneous
  Country: US (occurrence: US)
  Receive Date: 20190520
  Receipt Date: 20190520
  Transmission Date: 20190711
  Serious: No
  Sender: FDA-Public Use
  Company Number: US-BAYER-2019-098367

PATIENT
  Age: 80 Year
  Sex: Female

DRUGS (2)
  1. CLARITIN [Suspect]
     Active Substance: LORATADINE
     Indication: SINUS DISORDER
     Dosage: 1 DF, QD
     Route: 048
     Dates: start: 201902
  2. CLARITIN [Suspect]
     Active Substance: LORATADINE
     Indication: COUGH

REACTIONS (2)
  - Weight increased [Unknown]
  - Product use in unapproved indication [Unknown]

NARRATIVE: CASE EVENT DATE: 201902
